FAERS Safety Report 24726203 (Version 1)
Quarter: 2024Q4

REPORT INFORMATION
  Report Type: Spontaneous
  Country: US (occurrence: None)
  Receive Date: 20241211
  Receipt Date: 20241211
  Transmission Date: 20250115
  Serious: No
  Sender: Public
  Company Number: None

PATIENT
  Age: 57 Year
  Sex: Male

DRUGS (2)
  1. CIPROFLOXACIN [Suspect]
     Active Substance: CIPROFLOXACIN
     Indication: Diverticulitis
     Dosage: 1.00 MG ONCE ORAL?
     Route: 048
     Dates: start: 20220927, end: 20220927
  2. METRONIDAZOLE [Suspect]
     Active Substance: METRONIDAZOLE
     Dosage: 1.00   ONCE ORAL?
     Route: 048
     Dates: start: 20220927, end: 20220927

REACTIONS (7)
  - Angioedema [None]
  - Pruritus [None]
  - Rash [None]
  - Lip swelling [None]
  - Eye swelling [None]
  - Ear swelling [None]
  - Peripheral swelling [None]

NARRATIVE: CASE EVENT DATE: 20220928
